FAERS Safety Report 6408160-8 (Version None)
Quarter: 2009Q4

REPORT INFORMATION
  Report Type: 
  Country: None (occurrence: None)
  Receive Date: 20091021
  Receipt Date: 20091012
  Transmission Date: 20100525
  Serious: Yes (Hospitalization, Other)
  Sender: FDA-Public Use
  Company Number: AU-ASTRAZENECA-2009SE19586

PATIENT
  Age: 63 Year
  Sex: Female

DRUGS (6)
  1. ROSUVASTATIN [Suspect]
     Route: 048
     Dates: end: 20071126
  2. HYDROCHLOROTHIAZIDE [Concomitant]
  3. MELOXICAM [Concomitant]
  4. MIRTAZAPINE [Concomitant]
  5. PARACETAMOL [Concomitant]
  6. TRANDOLAPRIL [Concomitant]

REACTIONS (5)
  - ACUTE MYOCARDIAL INFARCTION [None]
  - CHEST PAIN [None]
  - HEPATIC ENZYME INCREASED [None]
  - MUSCULAR WEAKNESS [None]
  - MYOCARDIAL INFARCTION [None]
